FAERS Safety Report 18978218 (Version 1)
Quarter: 2021Q1

REPORT INFORMATION
  Report Type: Spontaneous
  Country: US (occurrence: US)
  Receive Date: 20210307
  Receipt Date: 20210307
  Transmission Date: 20210420
  Serious: No
  Sender: FDA-Public Use
  Company Number: US-TEVA-2021-US-1885518

PATIENT
  Age: 90 Year
  Sex: Female
  Weight: 48.99 kg

DRUGS (2)
  1. ALBUTEROL SULFATE HFA [Suspect]
     Active Substance: ALBUTEROL SULFATE
     Indication: CHRONIC OBSTRUCTIVE PULMONARY DISEASE
     Dosage: 2 PUFFS AS NEEDED
     Route: 055
     Dates: start: 202012
  2. TIMOLOL EYE DROPS [Interacting]
     Active Substance: TIMOLOL
     Route: 047

REACTIONS (3)
  - Drug interaction [Unknown]
  - Asthenia [Recovered/Resolved]
  - Depression [Recovered/Resolved]
